FAERS Safety Report 7901903-3 (Version None)
Quarter: 2011Q4

REPORT INFORMATION
  Report Type: 
  Country: None (occurrence: None)
  Receive Date: 20111108
  Receipt Date: 20111102
  Transmission Date: 20120403
  Serious: Yes (Death)
  Sender: FDA-Public Use
  Company Number: US-SANOFI-AVENTIS-2011SA072096

PATIENT
  Age: 86 Year
  Sex: Male
  Weight: 57 kg

DRUGS (2)
  1. PLAVIX [Suspect]
     Indication: STENT PLACEMENT
  2. PLAVIX [Suspect]

REACTIONS (1)
  - DEATH [None]
